FAERS Safety Report 7248791-9 (Version None)
Quarter: 2011Q1

REPORT INFORMATION
  Report Type: 
  Country: None (occurrence: None)
  Receive Date: 20110128
  Receipt Date: 20110125
  Transmission Date: 20110831
  Serious: Yes (Hospitalization, Other)
  Sender: FDA-Public Use
  Company Number: US-ASTRAZENECA-2008UW00803

PATIENT
  Age: 18210 Day
  Sex: Female
  Weight: 63.5 kg

DRUGS (24)
  1. HYDROCODONE [Concomitant]
     Dosage: 7.5/ 30,5/500, 5-325,7.5 / 500 , 10/ 325
     Dates: start: 20041108
  2. DIPHENHYDRAMINE [Concomitant]
     Dates: start: 20051103
  3. DIAZEPAM [Concomitant]
     Dosage: 05 MG TO 10 MG
     Dates: start: 20070425
  4. VALIUM [Concomitant]
     Route: 048
     Dates: start: 20091231
  5. ULTRAM [Concomitant]
     Dates: end: 20091231
  6. GABAPENTIN [Concomitant]
     Dates: start: 20090401
  7. SEROQUEL [Suspect]
     Dosage: 25 MG TID/PRN
     Route: 048
     Dates: start: 20040427
  8. SEROQUEL [Suspect]
     Route: 048
     Dates: start: 20091231
  9. ZYPREXA [Concomitant]
     Indication: SLEEP DISORDER
  10. PROZAC [Concomitant]
     Route: 048
     Dates: start: 20040629
  11. ACETAMINOPHEN [Concomitant]
     Dates: start: 20060427
  12. METHOCARBAMOL [Concomitant]
     Dates: start: 20070814
  13. HYDROCHLOROTHIAZIDE [Concomitant]
     Dates: start: 20080828
  14. SEROQUEL [Suspect]
     Dosage: 100-300 MG AT NIGHT
     Route: 048
     Dates: start: 20040629
  15. LITHIUM CARBONATE [Concomitant]
     Indication: MOOD SWINGS
     Dosage: 300-600 MG DAILY
     Dates: start: 20040427
  16. XANAX [Concomitant]
     Indication: ANXIETY
     Route: 048
     Dates: start: 20040401
  17. XANAX [Concomitant]
     Route: 048
     Dates: start: 20040629
  18. ULTRAM [Concomitant]
     Dates: start: 20070409
  19. TRAMADOL HCL [Concomitant]
     Dates: start: 20060824
  20. PERCOCET [Concomitant]
     Dosage: 10/325 MG QID
     Route: 048
     Dates: start: 20091231
  21. CELEXA [Concomitant]
     Indication: AFFECTIVE DISORDER
     Dates: start: 20040427
  22. HYDROCODONE [Concomitant]
     Dosage: 10/325
     Dates: start: 20070409
  23. AMITRIPTYLINE HCL [Concomitant]
     Dates: start: 20070814
  24. HYDROCHLOROTHIAZIDE [Concomitant]
     Dates: start: 20070820

REACTIONS (7)
  - LOSS OF CONSCIOUSNESS [None]
  - OPEN WOUND [None]
  - EXCORIATION [None]
  - ROAD TRAFFIC ACCIDENT [None]
  - FOOT FRACTURE [None]
  - BACK PAIN [None]
  - DRUG HYPERSENSITIVITY [None]
